FAERS Safety Report 7452783-4 (Version None)
Quarter: 2011Q2

REPORT INFORMATION
  Report Type: 
  Country: None (occurrence: None)
  Receive Date: 20110502
  Receipt Date: 20101110
  Transmission Date: 20111010
  Serious: No
  Sender: FDA-Public Use
  Company Number: US-ASTRAZENECA-2010SE53874

PATIENT
  Age: 704 Month
  Sex: Female

DRUGS (5)
  1. LEVOTHYROXINE [Concomitant]
  2. NEXIUM [Suspect]
     Indication: GASTROOESOPHAGEAL REFLUX DISEASE
     Route: 048
     Dates: start: 20020101
  3. NEXIUM [Suspect]
     Route: 048
     Dates: start: 20100401
  4. ESTRADIOL [Concomitant]
  5. XANAX [Concomitant]

REACTIONS (2)
  - ABDOMINAL PAIN [None]
  - PANCREATIC DISORDER [None]
